FAERS Safety Report 4932994-X (Version None)
Quarter: 2006Q1

REPORT INFORMATION
  Report Type: 
  Country: None (occurrence: None)
  Receive Date: 20060301
  Receipt Date: 20060217
  Transmission Date: 20060701
  Serious: Yes (Death)
  Sender: FDA-Public Use
  Company Number: 2005145551

PATIENT
  Age: 52 Year
  Sex: Female
  Weight: 51.7101 kg

DRUGS (4)
  1. NEURONTIN [Suspect]
     Indication: FIBROMYALGIA
  2. CODEINE (CODEINE) [Suspect]
     Indication: ILL-DEFINED DISORDER
  3. BUTALBITAL [Suspect]
     Indication: ILL-DEFINED DISORDER
  4. SALICYLATES (SALICYLATES) [Suspect]
     Indication: ILL-DEFINED DISORDER

REACTIONS (5)
  - CARDIAC ARREST [None]
  - COMPLETED SUICIDE [None]
  - DRUG INEFFECTIVE [None]
  - DRUG TOXICITY [None]
  - INTENTIONAL OVERDOSE [None]
